FAERS Safety Report 21057173 (Version 2)
Quarter: 2022Q3

REPORT INFORMATION
  Report Type: Spontaneous
  Country: US (occurrence: US)
  Receive Date: 20220708
  Receipt Date: 20220803
  Transmission Date: 20221027
  Serious: No
  Sender: FDA-Public Use
  Company Number: US-LUPIN PHARMACEUTICALS INC.-2022-09256

PATIENT
  Age: 34 Year
  Sex: Female

DRUGS (3)
  1. OSELTAMIVIR [Suspect]
     Active Substance: OSELTAMIVIR
     Indication: Influenza
     Dosage: UNK (TWICE DAILY DOSED FOR THE RECOMMENDED 5-DAY DURATION)
     Route: 065
  2. SOTALOL [Suspect]
     Active Substance: SOTALOL
     Indication: Foetal arrhythmia
     Dosage: 80 MG, QD
     Route: 065
  3. SOTALOL [Suspect]
     Active Substance: SOTALOL
     Dosage: 20 MG, QD (GRADUAL DECREASE IN DOSE TO 20 MG DAILY)
     Route: 065

REACTIONS (1)
  - Exposure during pregnancy [Unknown]
